FAERS Safety Report 4313903-3 (Version None)
Quarter: 2004Q1

REPORT INFORMATION
  Report Type: 
  Country: None (occurrence: None)
  Receive Date: 20040305
  Receipt Date: 20040216
  Transmission Date: 20041129
  Serious: Yes (Death)
  Sender: FDA-Public Use
  Company Number: JP-JNJFOC-20040300540

PATIENT
  Age: 77 Year
  Sex: Male

DRUGS (5)
  1. FENTANYL [Suspect]
     Indication: CANCER PAIN
     Dosage: 2.5 MG, 1 IN 3 DAY, TRANSDERMAL (SEE IMAGE)
     Route: 062
     Dates: start: 20030530, end: 20030602
  2. FENTANYL [Suspect]
     Indication: CANCER PAIN
     Dosage: 2.5 MG, 1 IN 3 DAY, TRANSDERMAL (SEE IMAGE)
     Route: 062
     Dates: start: 20030602, end: 20030611
  3. BETAMETHASONE [Concomitant]
  4. CLONAZEPAM [Concomitant]
  5. FAMOTIDINE [Concomitant]

REACTIONS (2)
  - DRUG INEFFECTIVE [None]
  - MALIGNANT NEOPLASM PROGRESSION [None]
